FAERS Safety Report 10302178 (Version 2)
Quarter: 2014Q3

REPORT INFORMATION
  Report Type: Spontaneous
  Country: US (occurrence: US)
  Receive Date: 20140714
  Receipt Date: 20140714
  Transmission Date: 20150326
  Serious: No
  Sender: FDA-Public Use
  Company Number: US-GILEAD-2013-0081148

PATIENT
  Age: 53 Year
  Sex: Male

DRUGS (3)
  1. LETAIRIS [Suspect]
     Active Substance: AMBRISENTAN
     Indication: PULMONARY HYPERTENSION
     Dosage: 5 MG, QD
     Route: 048
     Dates: start: 20130719
  2. LETAIRIS [Suspect]
     Active Substance: AMBRISENTAN
     Indication: HYPOXIA
  3. LETAIRIS [Suspect]
     Active Substance: AMBRISENTAN
     Indication: VENTRICULAR SEPTAL DEFECT

REACTIONS (1)
  - Oedema peripheral [Recovered/Resolved]

NARRATIVE: CASE EVENT DATE: 201308
